FAERS Safety Report 7504499-3 (Version None)
Quarter: 2011Q2

REPORT INFORMATION
  Report Type: 
  Country: None (occurrence: None)
  Receive Date: 20110525
  Receipt Date: 20110518
  Transmission Date: 20111010
  Serious: Yes (Other)
  Sender: FDA-Public Use
  Company Number: US-US-EMD SERONO, INC.-7048699

PATIENT
  Sex: Female

DRUGS (2)
  1. REBIF [Suspect]
     Indication: MULTIPLE SCLEROSIS
     Route: 058
     Dates: start: 20110306
  2. REBIF [Suspect]
     Route: 058

REACTIONS (3)
  - GLOMERULONEPHRITIS MINIMAL LESION [None]
  - MALAISE [None]
  - NERVE INJURY [None]
